FAERS Safety Report 25613631 (Version 1)
Quarter: 2025Q3

REPORT INFORMATION
  Report Type: Spontaneous
  Country: US (occurrence: US)
  Receive Date: 20250728
  Receipt Date: 20250728
  Transmission Date: 20251021
  Serious: No
  Sender: IPSEN BIOPHARMACEUTICALS, INC.
  Company Number: US-IPSEN Group, Research and Development-2025-18243

PATIENT
  Sex: Female
  Weight: 43.54 kg

DRUGS (4)
  1. IQIRVO [Suspect]
     Active Substance: ELAFIBRANOR
     Indication: Primary biliary cholangitis
     Dates: start: 202505
  2. IQIRVO [Suspect]
     Active Substance: ELAFIBRANOR
     Indication: Hepatic cirrhosis
  3. JARDIANCE [Concomitant]
     Active Substance: EMPAGLIFLOZIN
     Indication: Primary biliary cholangitis
     Dates: start: 202505
  4. JARDIANCE [Concomitant]
     Active Substance: EMPAGLIFLOZIN
     Indication: Hepatic cirrhosis

REACTIONS (1)
  - Weight decreased [Not Recovered/Not Resolved]
